FAERS Safety Report 6934947-9 (Version None)
Quarter: 2010Q3

REPORT INFORMATION
  Report Type: 
  Country: None (occurrence: None)
  Receive Date: 20100821
  Receipt Date: 20100812
  Transmission Date: 20110219
  Serious: Yes (Other)
  Sender: FDA-Public Use
  Company Number: CHPA2010US13255

PATIENT
  Sex: Female

DRUGS (1)
  1. GAS-X CHEWABLE TABLETS UNKNOWN (NCH) [Suspect]
     Dosage: UNK, UNK
     Route: 048

REACTIONS (1)
  - DIVERTICULITIS [None]
